FAERS Safety Report 7503644-3 (Version None)
Quarter: 2011Q2

REPORT INFORMATION
  Report Type: 
  Country: None (occurrence: None)
  Receive Date: 20110525
  Receipt Date: 20110516
  Transmission Date: 20111010
  Serious: Yes (Hospitalization)
  Sender: FDA-Public Use
  Company Number: FR-ASTRAZENECA-2011SE27587

PATIENT
  Sex: Male

DRUGS (15)
  1. ATORVASTATIN [Interacting]
     Dates: end: 20110401
  2. SPIRIVA [Concomitant]
  3. EFFEXOR [Suspect]
     Indication: DEPRESSION
     Route: 048
     Dates: start: 20110205, end: 20110302
  4. AVODART [Concomitant]
  5. ERYTHROMYCIN [Interacting]
     Indication: ILEUS
  6. ESCITALOPRAM [Suspect]
     Route: 048
     Dates: start: 20110330, end: 20110408
  7. ATHYMIL [Concomitant]
  8. FORADIL [Concomitant]
  9. BIPERIDYS [Concomitant]
  10. INDAPAMIDE [Suspect]
     Indication: HYPERTENSION
     Route: 048
     Dates: start: 20110210, end: 20110228
  11. VASTAREL [Concomitant]
  12. NEXIUM [Interacting]
     Indication: ABDOMINAL PAIN UPPER
     Route: 048
     Dates: end: 20110422
  13. ESCITALOPRAM [Suspect]
     Indication: DEPRESSION
     Route: 048
     Dates: start: 20110303, end: 20110305
  14. ZOXAN LP [Concomitant]
  15. PRAVASTATIN [Concomitant]

REACTIONS (3)
  - DRUG INTERACTION [None]
  - SOMNOLENCE [None]
  - HYPONATRAEMIA [None]
